FAERS Safety Report 19145515 (Version 1)
Quarter: 2021Q2

REPORT INFORMATION
  Report Type: Spontaneous
  Country: NL (occurrence: NL)
  Receive Date: 20210416
  Receipt Date: 20210416
  Transmission Date: 20210717
  Serious: Yes (Other)
  Sender: FDA-Public Use
  Company Number: NL-TEVA-2021-NL-1900984

PATIENT
  Sex: Female
  Weight: 56 kg

DRUGS (1)
  1. PREGABALINE CAPSULE 25MG / BRAND NAME NOT SPECIFIED [Suspect]
     Active Substance: PREGABALIN
     Indication: NEURALGIA
     Dosage: 25 MILLIGRAM DAILY;  THERAPY END DATE:ASKU
     Dates: start: 20201231

REACTIONS (2)
  - Blood pressure decreased [Not Recovered/Not Resolved]
  - Arrhythmia [Not Recovered/Not Resolved]
